FAERS Safety Report 7557079-8 (Version None)
Quarter: 2011Q2

REPORT INFORMATION
  Report Type: 
  Country: None (occurrence: None)
  Receive Date: 20110620
  Receipt Date: 20110607
  Transmission Date: 20111010
  Serious: Yes (Hospitalization, Other)
  Sender: FDA-Public Use
  Company Number: US-ROCHE-731153

PATIENT
  Sex: Male
  Weight: 95.3 kg

DRUGS (2)
  1. ACCUTANE [Suspect]
     Indication: ACNE
     Route: 065
     Dates: start: 19860101, end: 19870101
  2. ASPIRIN [Concomitant]
     Indication: HEADACHE

REACTIONS (7)
  - CROHN'S DISEASE [None]
  - INTESTINAL OBSTRUCTION [None]
  - DUODENAL ULCER [None]
  - HAEMORRHOIDS [None]
  - ANAEMIA [None]
  - GASTROINTESTINAL HAEMORRHAGE [None]
  - GASTROINTESTINAL INJURY [None]
